FAERS Safety Report 13722242 (Version 1)
Quarter: 2017Q3

REPORT INFORMATION
  Report Type: Spontaneous
  Country: US (occurrence: US)
  Receive Date: 20170706
  Receipt Date: 20170706
  Transmission Date: 20171127
  Serious: Yes (Other)
  Sender: FDA-Public Use
  Company Number: US-APOTEX-2017AP013817

PATIENT
  Age: 11 Year
  Sex: Male

DRUGS (6)
  1. MOMETASONE FUROATE NASAL SPRAY [Suspect]
     Active Substance: MOMETASONE FUROATE
     Indication: ASTHMA
     Dosage: 200 ?G, BID
     Route: 065
  2. MOMETASONE FUROATE NASAL SPRAY [Suspect]
     Active Substance: MOMETASONE FUROATE
     Indication: HYPERSENSITIVITY
  3. FORMOTEROL [Suspect]
     Active Substance: FORMOTEROL
     Indication: RHINITIS ALLERGIC
  4. FORMOTEROL [Suspect]
     Active Substance: FORMOTEROL
     Indication: ASTHMA
     Route: 065
  5. MOMETASONE FUROATE NASAL SPRAY [Suspect]
     Active Substance: MOMETASONE FUROATE
     Indication: RHINITIS ALLERGIC
  6. FORMOTEROL [Suspect]
     Active Substance: FORMOTEROL
     Indication: HYPERSENSITIVITY

REACTIONS (2)
  - Adrenal insufficiency [Unknown]
  - Growth failure [Unknown]
